FAERS Safety Report 6942585-7 (Version None)
Quarter: 2010Q3

REPORT INFORMATION
  Report Type: 
  Country: None (occurrence: None)
  Receive Date: 20100826
  Receipt Date: 20100823
  Transmission Date: 20110219
  Serious: Yes (Hospitalization, Other)
  Sender: FDA-Public Use
  Company Number: US-ROXANE LABORATORIES, INC.-2010-RO-01122RO

PATIENT
  Age: 54 Year
  Sex: Female

DRUGS (10)
  1. LITHIUM CARBONATE [Suspect]
     Indication: BIPOLAR DISORDER
  2. LITHIUM CARBONATE [Suspect]
     Dosage: 600 MG
  3. RISPERIDONE [Suspect]
     Indication: AGITATION
     Dosage: 2 MG
     Route: 048
  4. LORAZEPAM [Suspect]
     Indication: AGITATION
  5. HALOPERIDOL [Suspect]
     Indication: AGITATION
     Route: 030
  6. HALOPERIDOL [Suspect]
     Route: 030
  7. BENZTROPINE MESYLATE [Suspect]
     Indication: PROPHYLAXIS
     Route: 030
  8. BENZTROPINE MESYLATE [Suspect]
     Indication: DYSTONIA
     Route: 030
  9. BENZODIAZEPINES [Suspect]
  10. CANNABINOIDS [Suspect]

REACTIONS (4)
  - DRUG INEFFECTIVE [None]
  - DRUG SCREEN POSITIVE [None]
  - NEUROLEPTIC MALIGNANT SYNDROME [None]
  - TREATMENT NONCOMPLIANCE [None]
